FAERS Safety Report 8563664 (Version 2)
Quarter: 2012Q4

REPORT INFORMATION
  Report Type: Report from Study
  Country: FR (occurrence: FR)
  Receive Date: 20120515
  Receipt Date: 20120911
  Transmission Date: 20130627
  Serious: Yes (Other)
  Sender: FDA-Public Use
  Company Number: FR-B.I. PHARMACEUTICALS,INC./RIDGEFIELD-2010-FF-00979FF

PATIENT
  Age: 63 Year
  Sex: Female
  Weight: 64 kg

DRUGS (4)
  1. PRADAXA [Suspect]
     Indication: THROMBOSIS PROPHYLAXIS
     Dosage: 220 mg
     Route: 048
     Dates: start: 20101116, end: 20101121
  2. PRADAXA [Suspect]
     Indication: KNEE ARTHROPLASTY
  3. PARACETAMOL [Concomitant]
     Indication: PAIN
     Dosage: 3 g
     Route: 048
     Dates: start: 20101116
  4. NIMESULIDE [Concomitant]
     Indication: PAIN
     Dosage: 200 mg
     Route: 048
     Dates: start: 20101117, end: 20101121

REACTIONS (1)
  - Phlebitis [Recovered/Resolved]
